FAERS Safety Report 4410514-6 (Version None)
Quarter: 2004Q3

REPORT INFORMATION
  Report Type: 
  Country: None (occurrence: None)
  Receive Date: 20040726
  Receipt Date: 20040226
  Transmission Date: 20050211
  Serious: Yes (Other)
  Sender: FDA-Public Use
  Company Number: FR-JNJFOC-20040301460

PATIENT
  Age: 38 Year
  Sex: Female

DRUGS (6)
  1. TOPIRAMATE [Suspect]
     Indication: EPILEPSY
     Dosage: 25 MG, 2 IN 1 DAY, ORAL
     Route: 048
     Dates: start: 20031116, end: 20031212
  2. NEURONTIN [Concomitant]
  3. LEVOTHYROXINE SODIUM [Concomitant]
  4. HYDROCORTISONE [Concomitant]
  5. SURGESTONE (PROMEGESTONE) TABLETS [Concomitant]
  6. ESTREVA (ESTRADIOL) [Concomitant]

REACTIONS (5)
  - BALANCE DISORDER [None]
  - CONDITION AGGRAVATED [None]
  - FALL [None]
  - LOSS OF CONSCIOUSNESS [None]
  - SLEEP DISORDER [None]
